APPROVED DRUG PRODUCT: THYRO-BLOCK
Active Ingredient: POTASSIUM IODIDE
Strength: 130MG
Dosage Form/Route: TABLET;ORAL
Application: N018307 | Product #001
Applicant: MEDA PHARMACEUTICALS
Approved: Approved Prior to Jan 1, 1982 | RLD: No | RS: No | Type: DISCN